FAERS Safety Report 17100114 (Version 2)
Quarter: 2019Q4

REPORT INFORMATION
  Report Type: Spontaneous
  Country: JP (occurrence: JP)
  Receive Date: 20191202
  Receipt Date: 20191219
  Transmission Date: 20200122
  Serious: Yes (Hospitalization, Other)
  Sender: FDA-Public Use
  Company Number: NVSJ2019JP003584

PATIENT
  Age: 39 Year
  Sex: Female

DRUGS (5)
  1. NEORAL [Suspect]
     Active Substance: CYCLOSPORINE
     Dosage: 75 MG, UNK
     Route: 048
  2. PREDNISOLONE. [Suspect]
     Active Substance: PREDNISOLONE
     Dosage: 25 MG, UNK
     Route: 065
  3. NEORAL [Suspect]
     Active Substance: CYCLOSPORINE
     Indication: LUPUS NEPHRITIS
     Dosage: UNK
     Route: 048
  4. PREDNISOLONE. [Suspect]
     Active Substance: PREDNISOLONE
     Indication: SYSTEMIC LUPUS ERYTHEMATOSUS
     Dosage: 7 MG, UNK
     Route: 065
  5. PREDNISOLONE. [Suspect]
     Active Substance: PREDNISOLONE
     Dosage: 35 MG, 0.8MG/KG, UNK
     Route: 065

REACTIONS (14)
  - Systemic lupus erythematosus [Unknown]
  - Double stranded DNA antibody positive [Recovering/Resolving]
  - Protein urine present [Not Recovered/Not Resolved]
  - Disease progression [Unknown]
  - Tubulointerstitial nephritis [Unknown]
  - Lupus nephritis [Recovered/Resolved]
  - Arthritis [Unknown]
  - Arteriosclerosis [Unknown]
  - Rash [Unknown]
  - Full blood count decreased [Unknown]
  - Nephropathy [Unknown]
  - Renal tubular atrophy [Unknown]
  - Hypocomplementaemia [Recovering/Resolving]
  - Pyrexia [Unknown]
